FAERS Safety Report 9932514 (Version 2)
Quarter: 2014Q1

REPORT INFORMATION
  Report Type: Spontaneous
  Country: US (occurrence: US)
  Receive Date: 20140228
  Receipt Date: 20140228
  Transmission Date: 20141002
  Serious: No
  Sender: FDA-Public Use
  Company Number: US-ABBVIE-13P-163-1179831-00

PATIENT
  Age: 59 Year
  Sex: Male
  Weight: 90.8 kg

DRUGS (4)
  1. ANDROGEL [Suspect]
     Indication: BLOOD TESTOSTERONE DECREASED
     Dosage: 2.5 G
     Route: 061
     Dates: start: 20130329, end: 201307
  2. ANDROGEL [Suspect]
     Dosage: 2 40.5 MG PKTS
     Route: 061
     Dates: start: 201307
  3. ZOCOR [Concomitant]
     Indication: BLOOD CHOLESTEROL INCREASED
  4. VOLTAREN [Concomitant]
     Indication: NECK PAIN
     Dosage: PRN

REACTIONS (2)
  - Blood testosterone decreased [Not Recovered/Not Resolved]
  - Drug ineffective [Not Recovered/Not Resolved]
